FAERS Safety Report 8279954-1 (Version None)
Quarter: 2012Q2

REPORT INFORMATION
  Report Type: 
  Country: None (occurrence: None)
  Receive Date: 20120412
  Receipt Date: 20110912
  Transmission Date: 20120825
  Serious: No
  Sender: FDA-Public Use
  Company Number: US-ASTRAZENECA-1999AU11159

PATIENT
  Age: 77 Year
  Sex: Male
  Weight: 97.5 kg

DRUGS (7)
  1. NEXIUM [Suspect]
     Indication: GASTROOESOPHAGEAL REFLUX DISEASE
     Route: 048
  2. PRILOSEC [Suspect]
     Indication: OESOPHAGEAL DILATATION
     Route: 048
     Dates: start: 19990711
  3. CRESTOR [Suspect]
     Route: 048
  4. MONOPRIL [Concomitant]
  5. ZOCOR [Concomitant]
  6. ZENECAR [Concomitant]
     Indication: BLOOD PRESSURE ABNORMAL
  7. COREG [Concomitant]
     Indication: BLOOD PRESSURE ABNORMAL

REACTIONS (2)
  - FLATULENCE [None]
  - DRUG PRESCRIBING ERROR [None]
